FAERS Safety Report 6223253-6 (Version None)
Quarter: 2009Q2

REPORT INFORMATION
  Report Type: 
  Country: None (occurrence: None)
  Receive Date: 20090611
  Receipt Date: 20090602
  Transmission Date: 20091009
  Serious: Yes (Hospitalization, Other)
  Sender: FDA-Public Use
  Company Number: PHHO2005CA06815

PATIENT
  Sex: Female

DRUGS (12)
  1. SANDOSTATIN LAR [Suspect]
     Indication: CARCINOID TUMOUR
     Dosage: 60 MG, QMO
     Route: 030
     Dates: start: 20050303
  2. DILAUDID [Concomitant]
     Dosage: 100 MG, QID
     Route: 058
  3. COLACE [Concomitant]
  4. GRAVOL TAB [Concomitant]
  5. ASPIRIN [Concomitant]
     Dosage: 81 MG, BID
  6. CYCLOBENZAPRINE [Concomitant]
     Dosage: 10 MG, QID
  7. SYNTHROID [Concomitant]
     Dosage: 0.88 MG, QD
  8. VENTOLIN [Concomitant]
     Dosage: UNK
  9. ALBUTEROL [Concomitant]
     Dosage: 2 PUFFS BID
  10. FENTANYL [Concomitant]
     Dosage: 500 MG
  11. IRON [Concomitant]
     Dosage: 300 MG, QD
  12. TYLENOL (CAPLET) [Concomitant]
     Dosage: 1-2 TABS QD

REACTIONS (12)
  - ASTHMA [None]
  - HAEMORRHAGIC DIATHESIS [None]
  - HEPATIC EMBOLISATION [None]
  - HEPATIC NEOPLASM MALIGNANT [None]
  - HERNIA [None]
  - HYPOAESTHESIA [None]
  - INTESTINAL RESECTION [None]
  - LYMPHOEDEMA [None]
  - MUSCLE ATROPHY [None]
  - MUSCULOSKELETAL STIFFNESS [None]
  - PAIN [None]
  - TRANSIENT ISCHAEMIC ATTACK [None]
